FAERS Safety Report 9207331 (Version 1)
Quarter: 2013Q2

REPORT INFORMATION
  Report Type: Spontaneous
  Country: JP (occurrence: JP)
  Receive Date: 20130403
  Receipt Date: 20130403
  Transmission Date: 20140414
  Serious: Yes (Other)
  Sender: FDA-Public Use
  Company Number: JP-ROCHE-1180805

PATIENT
  Sex: Male
  Weight: 63 kg

DRUGS (6)
  1. MIRCERA [Suspect]
     Indication: NEPHROGENIC ANAEMIA
     Dosage: DOSAGE IS UNCERTAIN
     Route: 058
     Dates: start: 20120920, end: 20120920
  2. MIRCERA [Suspect]
     Dosage: DOSAGE IS UNCERTAIN
     Route: 058
     Dates: start: 20121018, end: 20121018
  3. BLOPRESS [Concomitant]
     Indication: HYPERTENSION
     Route: 048
     Dates: start: 20110719
  4. ATELEC [Concomitant]
     Indication: HYPERTENSION
     Route: 048
     Dates: start: 20090710
  5. RANITAC [Concomitant]
     Route: 048
     Dates: start: 20070620
  6. CALCIUM POLYSTYRENE SULFONATE [Concomitant]
     Route: 048
     Dates: start: 20120614

REACTIONS (1)
  - Drug eruption [Recovered/Resolved]
